FAERS Safety Report 15235371 (Version 1)
Quarter: 2018Q3

REPORT INFORMATION
  Report Type: Report from Study
  Country: US (occurrence: US)
  Receive Date: 20180803
  Receipt Date: 20180803
  Transmission Date: 20181010
  Serious: Yes (Other)
  Sender: FDA-Public Use
  Company Number: US-B.I. PHARMACEUTICALS,INC./RIDGEFIELD-2018-BI-038307

PATIENT
  Age: 80 Year
  Sex: Male

DRUGS (1)
  1. GILOTRIF [Suspect]
     Active Substance: AFATINIB
     Indication: CLEAR CELL RENAL CELL CARCINOMA
     Route: 065

REACTIONS (2)
  - Drug intolerance [Unknown]
  - Metastasis [Unknown]
